FAERS Safety Report 21345259 (Version 2)
Quarter: 2022Q4

REPORT INFORMATION
  Report Type: Spontaneous
  Country: JP (occurrence: JP)
  Receive Date: 20220916
  Receipt Date: 20221008
  Transmission Date: 20230112
  Serious: Yes (Other)
  Sender: FDA-Public Use
  Company Number: JP-ONO-2022JP025260

PATIENT
  Age: 73 Year
  Sex: Male

DRUGS (2)
  1. OPDIVO [Suspect]
     Active Substance: NIVOLUMAB
     Indication: Non-small cell lung cancer recurrent
     Dosage: UNK
     Route: 041
  2. OPDIVO [Suspect]
     Active Substance: NIVOLUMAB

REACTIONS (1)
  - Immune-mediated hepatitis [Unknown]
